FAERS Safety Report 5233308-0 (Version None)
Quarter: 2007Q1

REPORT INFORMATION
  Report Type: 
  Country: None (occurrence: None)
  Receive Date: 20070206
  Receipt Date: 20070129
  Transmission Date: 20070707
  Serious: Yes (Death, Hospitalization)
  Sender: FDA-Public Use
  Company Number: 152359USA

PATIENT
  Age: 74 Year
  Sex: Male

DRUGS (12)
  1. FLUOROURACIL [Suspect]
     Indication: COLORECTAL CANCER METASTATIC
     Dosage: 860 MG 1/14 DAY, INTRAVENOUS BOLUS
     Route: 040
     Dates: start: 20061101, end: 20061101
  2. LEUCOVORIN CALCIUM [Suspect]
     Indication: COLORECTAL CANCER METASTATIC
     Dosage: 860 MG 1/14 DAY, INTRAVENOUS (NOT OTHERWISE SPECIFIED)
     Route: 042
  3. CETUXIMAB [Suspect]
     Indication: COLORECTAL CANCER METASTATIC
     Dosage: 538 MG 1/1 WEEK, INTRAVENOUS (NOT OTHERWISE SPECIFIED)
     Route: 042
  4. BEVACIZUMAB [Suspect]
     Indication: COLORECTAL CANCER METASTATIC
     Dosage: 465 MG 1/14 DAY
  5. CORTISONE ACETATE [Concomitant]
  6. FLUDROCORTISONE ACETATE [Concomitant]
  7. WARFARIN SODIUM [Concomitant]
  8. CIPROFLOXACIN [Concomitant]
  9. FINASTERIDE [Concomitant]
  10. SERTRALINE [Concomitant]
  11. PROMETHAZINE [Concomitant]
  12. PARACETAMOL [Concomitant]

REACTIONS (16)
  - ADHESION [None]
  - ARTERIOSCLEROSIS [None]
  - BLOOD POTASSIUM DECREASED [None]
  - CELLULITIS [None]
  - GALLBLADDER DISORDER [None]
  - GASTROENTERITIS [None]
  - GASTROINTESTINAL DISORDER [None]
  - HYDRONEPHROSIS [None]
  - MEAN CELL VOLUME INCREASED [None]
  - PANCREATIC ATROPHY [None]
  - PERITONEAL NEOPLASM [None]
  - RASH ERYTHEMATOUS [None]
  - RENAL CYST [None]
  - SMALL INTESTINAL OBSTRUCTION [None]
  - THROMBOSIS [None]
  - WHITE BLOOD CELL COUNT DECREASED [None]
